FAERS Safety Report 15171562 (Version 2)
Quarter: 2018Q3

REPORT INFORMATION
  Report Type: Spontaneous
  Country: CA (occurrence: CA)
  Receive Date: 20180720
  Receipt Date: 20180925
  Transmission Date: 20181010
  Serious: Yes (Other)
  Sender: FDA-Public Use
  Company Number: CA-CELLTRION INC.-2018CA021502

PATIENT

DRUGS (10)
  1. INFLECTRA [Suspect]
     Active Substance: INFLIXIMAB-DYYB
     Dosage: 900 MG, (Q 2, 6WEEKS,THEN EVERY 8 WEEKS)
     Route: 042
     Dates: start: 20180719, end: 20180719
  2. SALOFALK                           /00000301/ [Concomitant]
     Active Substance: MESALAMINE
  3. INFLECTRA [Suspect]
     Active Substance: INFLIXIMAB-DYYB
     Indication: COLITIS ULCERATIVE
     Dosage: 900 MG,  (Q 2, 6WEEKS,THEN EVERY 8 WEEKS)
     Route: 042
     Dates: start: 20180413
  4. INFLECTRA [Suspect]
     Active Substance: INFLIXIMAB-DYYB
     Dosage: 900 MG, (Q 2, 6WEEKS,THEN EVERY 8 WEEKS)
     Route: 042
     Dates: start: 20180719, end: 20180719
  5. HUMIRA [Concomitant]
     Active Substance: ADALIMUMAB
  6. INFLECTRA [Suspect]
     Active Substance: INFLIXIMAB-DYYB
     Dosage: 900 MG, (Q 2, 6WEEKS,THEN EVERY 8 WEEKS)
     Route: 042
     Dates: start: 20180524
  7. MEZAVANT [Concomitant]
     Active Substance: MESALAMINE
     Dosage: UNK
  8. CORTIFOAM [Concomitant]
     Active Substance: HYDROCORTISONE ACETATE
     Dosage: UNK
  9. PREDNISONE. [Concomitant]
     Active Substance: PREDNISONE
     Dosage: UNK
  10. INFLECTRA [Suspect]
     Active Substance: INFLIXIMAB-DYYB
     Dosage: 900 MG, (Q 2, 6WEEKS,THEN EVERY 8 WEEKS)
     Route: 042
     Dates: start: 20180719, end: 20180719

REACTIONS (2)
  - Haematochezia [Unknown]
  - Drug ineffective [Unknown]
